FAERS Safety Report 13156545 (Version 3)
Quarter: 2017Q2

REPORT INFORMATION
  Report Type: Spontaneous
  Country: US (occurrence: US)
  Receive Date: 20170126
  Receipt Date: 20170608
  Transmission Date: 20170830
  Serious: No
  Sender: FDA-Public Use
  Company Number: US-ACTELION-A-NJ2016-130743

PATIENT
  Age: 57 Year
  Sex: Female
  Weight: 63.49 kg

DRUGS (2)
  1. VELETRI [Suspect]
     Active Substance: EPOPROSTENOL
     Indication: PULMONARY HYPERTENSION
     Dosage: 9 NG/KG, PER MIN
     Route: 042
     Dates: start: 20160114
  2. WARFARIN [Concomitant]
     Active Substance: WARFARIN

REACTIONS (8)
  - Gastric disorder [Unknown]
  - Abdominal pain upper [Recovering/Resolving]
  - Headache [Not Recovered/Not Resolved]
  - Nausea [Unknown]
  - Pain [Unknown]
  - Pain in jaw [Not Recovered/Not Resolved]
  - Malaise [Unknown]
  - Diarrhoea [Not Recovered/Not Resolved]

NARRATIVE: CASE EVENT DATE: 20161031
